FAERS Safety Report 9236921 (Version 1)
Quarter: 2013Q2

REPORT INFORMATION
  Report Type: Spontaneous
  Country: BR (occurrence: BR)
  Receive Date: 20130417
  Receipt Date: 20130417
  Transmission Date: 20140414
  Serious: Yes (Other)
  Sender: FDA-Public Use
  Company Number: PHHY2013BR036820

PATIENT
  Sex: Female
  Weight: 31.5 kg

DRUGS (2)
  1. RITALIN LA [Suspect]
     Indication: ATTENTION DEFICIT/HYPERACTIVITY DISORDER
     Dosage: 1 DF, QD
     Route: 048
  2. DEPAKOTE [Concomitant]
     Indication: EPILEPSY
     Dosage: 1 DF (EVERY NIGHT), QD
     Route: 048
     Dates: start: 20100331

REACTIONS (4)
  - Feeling cold [Recovered/Resolved]
  - Pallor [Recovered/Resolved]
  - Nausea [Recovered/Resolved]
  - Hyperhidrosis [Recovered/Resolved]
